FAERS Safety Report 21735009 (Version 1)
Quarter: 2022Q4

REPORT INFORMATION
  Report Type: Other
  Country: IN (occurrence: None)
  Receive Date: 20221215
  Receipt Date: 20221215
  Transmission Date: 20230113
  Serious: Yes (Death, Other)
  Sender: FDA-Public Use
  Company Number: IN-ROCHE-2712917

PATIENT
  Age: 38 Year
  Sex: Female

DRUGS (4)
  1. PERJETA [Suspect]
     Active Substance: PERTUZUMAB
     Indication: HER2 positive breast cancer
     Route: 042
     Dates: start: 20190427
  2. PERJETA [Suspect]
     Active Substance: PERTUZUMAB
     Indication: Breast cancer stage IV
     Route: 042
     Dates: start: 20220716
  3. KADCYLA [Suspect]
     Active Substance: ADO-TRASTUZUMAB EMTANSINE
     Indication: Breast cancer metastatic
     Route: 042
     Dates: start: 20200627
  4. TRASTUZUMAB [Concomitant]
     Active Substance: TRASTUZUMAB

REACTIONS (2)
  - Neoplasm [Unknown]
  - Death [Fatal]

NARRATIVE: CASE EVENT DATE: 20200627
